FAERS Safety Report 14284921 (Version 2)
Quarter: 2018Q1

REPORT INFORMATION
  Report Type: Spontaneous
  Country: FR (occurrence: FR)
  Receive Date: 20171214
  Receipt Date: 20180201
  Transmission Date: 20180509
  Serious: Yes (Other)
  Sender: FDA-Public Use
  Company Number: FR-MERCK KGAA-2037169

PATIENT
  Age: 69 Year
  Sex: Male

DRUGS (11)
  1. SOTALEX [Concomitant]
     Active Substance: SOTALOL
  2. CYCLOTERIAM [Concomitant]
  3. MONOTILDIEM [Concomitant]
     Active Substance: DILTIAZEM
  4. MODURETIC 5-50 [Concomitant]
     Active Substance: AMILORIDE HYDROCHLORIDE\HYDROCHLOROTHIAZIDE
  5. LEVOTHYROX [Suspect]
     Active Substance: LEVOTHYROXINE
  6. FORTZAAR(HYZAAR) [Concomitant]
  7. NOVOTHYROX [Suspect]
     Active Substance: LEVOTHYROXINE SODIUM
     Indication: POST PROCEDURAL HYPOTHYROIDISM
     Dates: start: 20091216
  8. LEVOTHYROX [Suspect]
     Active Substance: LEVOTHYROXINE
  9. LEVOTHYROX [Suspect]
     Active Substance: LEVOTHYROXINE
  10. AMLOR [Concomitant]
     Active Substance: AMLODIPINE BESYLATE
  11. XANAX [Concomitant]
     Active Substance: ALPRAZOLAM

REACTIONS (7)
  - Blood pressure abnormal [None]
  - Perineal pain [None]
  - Myalgia [None]
  - Skin lesion [None]
  - Hyperglycaemia [None]
  - Sinus bradycardia [None]
  - Pain in extremity [None]

NARRATIVE: CASE EVENT DATE: 20100531
